FAERS Safety Report 8709069 (Version 2)
Quarter: 2012Q4

REPORT INFORMATION
  Report Type: Report from Study
  Country: BR (occurrence: BR)
  Receive Date: 20120806
  Receipt Date: 20121217
  Transmission Date: 20130627
  Serious: Yes (Other)
  Sender: FDA-Public Use
  Company Number: BR-ROCHE-1097258

PATIENT
  Sex: Female
  Weight: 72 kg

DRUGS (13)
  1. RITUXIMAB [Suspect]
     Indication: RHEUMATOID ARTHRITIS
     Route: 065
     Dates: start: 201110
  2. RITUXIMAB [Suspect]
     Route: 065
     Dates: start: 20120218
  3. RITUXIMAB [Suspect]
     Route: 065
     Dates: start: 20120303, end: 20120303
  4. PURAN T4 [Concomitant]
     Route: 065
  5. PURAN T4 [Concomitant]
     Route: 065
  6. DIAMICRON [Concomitant]
     Route: 065
  7. PANTOPRAZOLE [Concomitant]
     Route: 065
  8. PRISTIQ [Concomitant]
     Route: 065
  9. NORIPURUM [Concomitant]
  10. FORASEQ [Concomitant]
  11. GLIFAGE [Concomitant]
     Route: 065
  12. METHOTREXATE [Concomitant]
     Route: 065
  13. EXELON [Concomitant]
     Route: 065

REACTIONS (2)
  - Emphysema [Not Recovered/Not Resolved]
  - Anaemia [Unknown]
